FAERS Safety Report 21440677 (Version 1)
Quarter: 2022Q4

REPORT INFORMATION
  Report Type: Spontaneous
  Country: JP (occurrence: JP)
  Receive Date: 20221011
  Receipt Date: 20221011
  Transmission Date: 20230113
  Serious: Yes (Other)
  Sender: FDA-Public Use
  Company Number: JP-GUERBETG-JP-20220155

PATIENT
  Age: 34 Year
  Sex: Female

DRUGS (2)
  1. LIPIODOL [Suspect]
     Active Substance: ETHIODIZED OIL
     Indication: Hysterosalpingogram
  2. CLOMIPHENE [Concomitant]
     Active Substance: CLOMIPHENE
     Indication: Infertility

REACTIONS (7)
  - Hypothyroidism [Recovered/Resolved]
  - Polyhydramnios [Recovered/Resolved]
  - Urine iodine increased [Unknown]
  - Premature delivery [Recovered/Resolved]
  - Product use in unapproved indication [Unknown]
  - Therapeutic response unexpected [Unknown]
  - Maternal exposure before pregnancy [Unknown]
